FAERS Safety Report 23479129 (Version 2)
Quarter: 2024Q2

REPORT INFORMATION
  Report Type: Report from Study
  Country: US (occurrence: US)
  Receive Date: 20240205
  Receipt Date: 20240420
  Transmission Date: 20240717
  Serious: Yes (Death, Hospitalization, Other)
  Sender: FDA-Public Use
  Company Number: US-DECIPHERA PHARMACEUTICALS LLC-2024US000090

PATIENT
  Age: 87 Year
  Sex: Female
  Weight: 54.2 kg

DRUGS (11)
  1. QINLOCK [Suspect]
     Active Substance: RIPRETINIB
     Indication: Gastrointestinal stromal tumour
     Dosage: UNK
     Route: 048
     Dates: start: 20201130, end: 20220509
  2. QINLOCK [Suspect]
     Active Substance: RIPRETINIB
     Dosage: 150 MILLIGRAM, BID
     Route: 048
     Dates: start: 20230113, end: 2023
  3. QINLOCK [Suspect]
     Active Substance: RIPRETINIB
     Dosage: 100 MILLIGRAM, BID
     Route: 048
     Dates: start: 20230531, end: 2023
  4. QINLOCK [Suspect]
     Active Substance: RIPRETINIB
     Dosage: 150 MILLIGRAM, BID
     Route: 048
     Dates: start: 2023, end: 2023
  5. LEVOTHYROXINE [Concomitant]
     Active Substance: LEVOTHYROXINE\LEVOTHYROXINE SODIUM
     Indication: Product used for unknown indication
     Dosage: 75 MICROGRAM, QD (DAILY BEFORE BREAKFAST))
     Route: 048
  6. PROTONIX [Concomitant]
     Active Substance: PANTOPRAZOLE SODIUM
     Indication: Product used for unknown indication
     Dosage: 40 MILLIGRAM, BID (BEFORE BREAKFAST AND DINNER)
     Route: 048
  7. TYLENOL [Concomitant]
     Active Substance: ACETAMINOPHEN
     Indication: Product used for unknown indication
     Dosage: 650 MILLIGRAM, Q4H (PRN, 40 UNITS/KG)
     Route: 048
  8. ZOFRAN [Concomitant]
     Active Substance: ONDANSETRON HYDROCHLORIDE
     Indication: Product used for unknown indication
     Dosage: 4 MILLIGRAM, Q8H PRN
     Route: 048
  9. SODIUM CHLORIDE [Concomitant]
     Active Substance: SODIUM CHLORIDE
     Indication: Product used for unknown indication
     Dosage: 0.9 % IN 10 ML
     Route: 042
  10. PRILOSEC [Concomitant]
     Active Substance: OMEPRAZOLE MAGNESIUM
     Indication: Product used for unknown indication
     Dosage: 40 MILLIGRAM, BID
  11. NARCAN [Concomitant]
     Active Substance: NALOXONE HYDROCHLORIDE
     Indication: Product used for unknown indication
     Dosage: USE 1 SPRAY  IN 1 NOSTRIL. REPEAT  WITH SECOND DEVICE IN OTHER NOSTRIL  AFTER 2-3 MINUTES  IF NO OR

REACTIONS (13)
  - Death [Fatal]
  - Syncope [Unknown]
  - Haematochezia [Unknown]
  - Pleural effusion [Unknown]
  - Malignant neoplasm progression [Unknown]
  - Pulmonary embolism [Unknown]
  - Melaena [Unknown]
  - Metastases to liver [Unknown]
  - Metastases to peritoneum [Unknown]
  - Constipation [Recovering/Resolving]
  - Pelvic pain [Unknown]
  - Back pain [Unknown]
  - Drug ineffective [Unknown]

NARRATIVE: CASE EVENT DATE: 20230101
